FAERS Safety Report 8588099-2 (Version None)
Quarter: 2012Q3

REPORT INFORMATION
  Report Type: 
  Country: None (occurrence: None)
  Receive Date: 20120731
  Receipt Date: 20120717
  Transmission Date: 20120928
  Serious: Yes (Other)
  Sender: FDA-Public Use
  Company Number: AUR-APL-2012-03214

PATIENT
  Age: 74 Year
  Sex: Female
  Weight: 55 kg

DRUGS (2)
  1. LOSARTAN POTASSIUM [Suspect]
     Indication: PRODUCT USED FOR UNKNOWN INDICATION
     Dosage: 25 MG, AS NEEDED, UNK
     Dates: start: 20120101
  2. VERAPAMIL HCL [Suspect]
     Indication: BLOOD PRESSURE INCREASED
     Dosage: 120 MG, AS NEEDED, UNK
     Dates: start: 20120101

REACTIONS (5)
  - BLOOD PRESSURE INCREASED [None]
  - FATIGUE [None]
  - HYPERSOMNIA [None]
  - CONSTIPATION [None]
  - BACK PAIN [None]
